FAERS Safety Report 19910144 (Version 2)
Quarter: 2021Q4

REPORT INFORMATION
  Report Type: Report from Study
  Country: US (occurrence: US)
  Receive Date: 20211003
  Receipt Date: 20211115
  Transmission Date: 20220303
  Serious: Yes (Hospitalization, Other)
  Sender: FDA-Public Use
  Company Number: US-ABBVIE-21K-163-4103136-00

PATIENT
  Age: 69 Year
  Sex: Male

DRUGS (11)
  1. IMBRUVICA [Suspect]
     Active Substance: IBRUTINIB
     Indication: Product used for unknown indication
     Dosage: 3 CAPSULES
     Route: 048
     Dates: start: 2018, end: 2018
  2. IMBRUVICA [Suspect]
     Active Substance: IBRUTINIB
     Dosage: 3 CAPSULES
     Route: 048
     Dates: start: 2018, end: 2020
  3. IMBRUVICA [Suspect]
     Active Substance: IBRUTINIB
     Dosage: 2 CAPSULES
     Route: 048
     Dates: start: 2020
  4. IMBRUVICA [Suspect]
     Active Substance: IBRUTINIB
     Indication: Chronic lymphocytic leukaemia
     Route: 048
     Dates: start: 201805, end: 201806
  5. MODERNA COVID-19 VACCINE [Concomitant]
     Active Substance: CX-024414
     Indication: COVID-19 immunisation
     Dosage: 1 DOSE
     Route: 030
     Dates: start: 202102, end: 202102
  6. MODERNA COVID-19 VACCINE [Concomitant]
     Active Substance: CX-024414
     Dosage: 2 DOSE
     Route: 030
     Dates: start: 202103, end: 202103
  7. MODERNA COVID-19 VACCINE [Concomitant]
     Active Substance: CX-024414
     Dosage: 3 DOSE
     Route: 030
     Dates: start: 202109, end: 202109
  8. SYNTHROID [Concomitant]
     Active Substance: LEVOTHYROXINE SODIUM
     Indication: Hypothyroidism
  9. CABERGOLINE [Concomitant]
     Active Substance: CABERGOLINE
     Indication: Pituitary tumour
  10. FLOMAX [Concomitant]
     Active Substance: TAMSULOSIN HYDROCHLORIDE
     Indication: Bladder disorder
  11. OXYBUTYNIN [Concomitant]
     Active Substance: OXYBUTYNIN
     Indication: Bladder disorder

REACTIONS (31)
  - Hip arthroplasty [Unknown]
  - SARS-CoV-2 test positive [Recovered/Resolved]
  - COVID-19 pneumonia [Recovered/Resolved]
  - Osteoarthritis [Recovering/Resolving]
  - COVID-19 [Unknown]
  - Pain in extremity [Recovered/Resolved]
  - Muscle spasms [Recovered/Resolved]
  - Cardiac disorder [Unknown]
  - Urinary tract disorder [Unknown]
  - Emotional disorder [Unknown]
  - Lymphocyte count abnormal [Recovering/Resolving]
  - Feeling abnormal [Unknown]
  - Arthritis [Recovering/Resolving]
  - Arthritis [Unknown]
  - Platelet count decreased [Not Recovered/Not Resolved]
  - Prostatic specific antigen decreased [Unknown]
  - Pollakiuria [Recovering/Resolving]
  - Dysuria [Recovering/Resolving]
  - Hypophagia [Recovering/Resolving]
  - Muscle atrophy [Unknown]
  - Cough [Recovered/Resolved]
  - Throat irritation [Unknown]
  - Heart rate increased [Recovering/Resolving]
  - Chest discomfort [Recovering/Resolving]
  - Rash [Recovered/Resolved]
  - Contusion [Recovered/Resolved]
  - Pruritus [Recovered/Resolved]
  - Weight decreased [Recovering/Resolving]
  - Asthenia [Unknown]
  - Pruritus [Unknown]
  - Fatigue [Unknown]

NARRATIVE: CASE EVENT DATE: 20180501
